FAERS Safety Report 7342071-9 (Version None)
Quarter: 2011Q1

REPORT INFORMATION
  Report Type: 
  Country: None (occurrence: None)
  Receive Date: 20110309
  Receipt Date: 20101126
  Transmission Date: 20110831
  Serious: Yes (Other)
  Sender: FDA-Public Use
  Company Number: JP-ASTRAZENECA-2011SE12332

PATIENT
  Age: 27999 Day
  Sex: Male

DRUGS (19)
  1. FAMOTIDINE [Concomitant]
     Indication: PROPHYLAXIS
     Dates: start: 20101001, end: 20101012
  2. ZYVOX [Concomitant]
     Indication: POST PROCEDURAL INFECTION
     Route: 042
     Dates: start: 20101020, end: 20101025
  3. MEROPEN [Suspect]
     Route: 042
     Dates: start: 20101004, end: 20101008
  4. VANCOMYCIN [Concomitant]
     Indication: POST PROCEDURAL INFECTION
     Route: 042
     Dates: start: 20101007, end: 20101010
  5. REMINARON [Concomitant]
     Indication: PROPHYLAXIS
     Route: 042
     Dates: start: 20101005, end: 20101011
  6. KAKODIN-D [Concomitant]
     Indication: PROPHYLAXIS
     Dates: start: 20101005, end: 20101012
  7. VANCOMYCIN [Concomitant]
     Route: 048
     Dates: start: 20101014, end: 20101025
  8. VANCOMYCIN [Concomitant]
     Route: 042
     Dates: start: 20101018, end: 20101019
  9. VANCOMYCIN [Concomitant]
     Route: 048
     Dates: start: 20101008, end: 20101013
  10. MIRACLID [Concomitant]
     Indication: PROPHYLAXIS
     Dates: start: 20101005, end: 20101011
  11. MEROPEN [Suspect]
     Route: 042
     Dates: start: 20101020, end: 20101025
  12. ROPIVACAINE HYDROCHLORIDE [Concomitant]
     Indication: PROCEDURAL PAIN
     Dates: start: 20101004, end: 20101011
  13. PRIMPERAN TAB [Concomitant]
     Indication: PROPHYLAXIS
     Dates: start: 20101013
  14. MEROPEN [Suspect]
     Indication: POST PROCEDURAL INFECTION
     Route: 042
     Dates: start: 20101002
  15. VANCOMYCIN [Concomitant]
     Route: 042
     Dates: start: 20101013, end: 20101015
  16. FAMOTIDINE [Concomitant]
     Dates: start: 20101017, end: 20101021
  17. METILON [Concomitant]
     Indication: PROPHYLAXIS
     Dates: start: 20101007, end: 20101020
  18. PENTAZOCINE LACTATE [Concomitant]
     Indication: PROCEDURAL PAIN
     Route: 042
     Dates: start: 20101013
  19. CEFTRIAXONE [Concomitant]
     Indication: POST PROCEDURAL INFECTION
     Dates: start: 20101019, end: 20101019

REACTIONS (1)
  - HEPATOCELLULAR INJURY [None]
